FAERS Safety Report 10071784 (Version 2)
Quarter: 2014Q2

REPORT INFORMATION
  Report Type: Spontaneous
  Country: US (occurrence: US)
  Receive Date: 20140411
  Receipt Date: 20140428
  Transmission Date: 20141212
  Serious: Yes (Other)
  Sender: FDA-Public Use
  Company Number: US-JNJFOC-20140403794

PATIENT
  Sex: Male

DRUGS (5)
  1. XARELTO [Suspect]
     Indication: PRODUCT USED FOR UNKNOWN INDICATION
     Route: 048
  2. PERCOCET [Concomitant]
     Route: 065
  3. PERCOCET [Concomitant]
     Dosage: 5/325
     Route: 065
  4. PRADAXA [Concomitant]
     Indication: ATRIAL FIBRILLATION
     Route: 065
  5. PRADAXA [Concomitant]
     Indication: ATRIAL FIBRILLATION
     Route: 065

REACTIONS (5)
  - Hypersensitivity [Recovering/Resolving]
  - Abscess limb [Unknown]
  - Purpura non-thrombocytopenic [Unknown]
  - Cellulitis [Unknown]
  - Atrial fibrillation [Unknown]
